FAERS Safety Report 6529489-9 (Version None)
Quarter: 2010Q1

REPORT INFORMATION
  Report Type: 
  Country: None (occurrence: None)
  Receive Date: 20100107
  Receipt Date: 20091224
  Transmission Date: 20100710
  Serious: Yes (Other)
  Sender: FDA-Public Use
  Company Number: PHEH2009US13745

PATIENT
  Sex: Male

DRUGS (4)
  1. DIOVAN HCT [Suspect]
     Dosage: UNK
     Dates: start: 20060101, end: 20080101
  2. ATENOLOL [Suspect]
  3. LISINOPRIL [Suspect]
  4. DILTIAZEM [Suspect]

REACTIONS (1)
  - STENT PLACEMENT [None]
